FAERS Safety Report 20237078 (Version 1)
Quarter: 2021Q4

REPORT INFORMATION
  Report Type: Report from Study
  Country: ES (occurrence: ES)
  Receive Date: 20211228
  Receipt Date: 20211228
  Transmission Date: 20220304
  Serious: Yes (Other)
  Sender: FDA-Public Use
  Company Number: ES-TEVA-2021-ES-1898683

PATIENT
  Age: 31 Year
  Sex: Male

DRUGS (1)
  1. COPAXONE [Suspect]
     Active Substance: GLATIRAMER ACETATE
     Indication: Multiple sclerosis
     Route: 058
     Dates: start: 20210318

REACTIONS (14)
  - Optic neuritis [Recovering/Resolving]
  - Relapsing multiple sclerosis [Recovering/Resolving]
  - Pyrexia [Not Recovered/Not Resolved]
  - Migraine [Recovered/Resolved]
  - Paraesthesia [Not Recovered/Not Resolved]
  - Limb discomfort [Recovering/Resolving]
  - Eye pain [Unknown]
  - Photopsia [Recovering/Resolving]
  - Dyschromatopsia [Unknown]
  - Vision blurred [Recovering/Resolving]
  - Visual field defect [Recovering/Resolving]
  - Colour vision tests abnormal [Recovering/Resolving]
  - Paraesthesia [Not Recovered/Not Resolved]
  - Headache [Not Recovered/Not Resolved]

NARRATIVE: CASE EVENT DATE: 20210101
